FAERS Safety Report 25967142 (Version 1)
Quarter: 2025Q4

REPORT INFORMATION
  Report Type: Spontaneous
  Country: US (occurrence: US)
  Receive Date: 20251028
  Receipt Date: 20251028
  Transmission Date: 20260118
  Serious: No
  Sender: APOTEX
  Company Number: US-APOTEX-2025AP031172

PATIENT

DRUGS (3)
  1. LITHIUM [Interacting]
     Active Substance: LITHIUM
     Indication: Major depression
     Dosage: 1200 MILLIGRAM, Q.H.S.
     Route: 065
  2. EMPAGLIFLOZIN [Interacting]
     Active Substance: EMPAGLIFLOZIN
     Indication: Product used for unknown indication
     Dosage: 25 MILLIGRAM
     Route: 065
  3. LISINOPRIL [Interacting]
     Active Substance: LISINOPRIL
     Indication: Product used for unknown indication
     Dosage: UNK
     Route: 065

REACTIONS (2)
  - Antipsychotic drug level decreased [Unknown]
  - Drug interaction [Unknown]
